FAERS Safety Report 8559315-8 (Version None)
Quarter: 2012Q3

REPORT INFORMATION
  Report Type: 
  Country: None (occurrence: None)
  Receive Date: 20120802
  Receipt Date: 20120730
  Transmission Date: 20120928
  Serious: Yes (Hospitalization)
  Sender: FDA-Public Use
  Company Number: US-BAYER-2012-065742

PATIENT
  Age: 59 Year
  Sex: Female

DRUGS (7)
  1. BETASERON [Suspect]
     Indication: MULTIPLE SCLEROSIS
     Dosage: 8 MIU, QOD
     Route: 058
     Dates: start: 20070731
  2. TOPREAL [Concomitant]
  3. TEGRETOL [Concomitant]
  4. LOTREL [Concomitant]
  5. CLONAZEPAM [Concomitant]
  6. BACLOFEN [Concomitant]
  7. WELLBUTRIN [Concomitant]

REACTIONS (2)
  - BURSITIS [None]
  - INJECTION SITE INDURATION [None]
